FAERS Safety Report 4398036-2 (Version None)
Quarter: 2004Q3

REPORT INFORMATION
  Report Type: 
  Country: None (occurrence: None)
  Receive Date: 20040715
  Receipt Date: 20040618
  Transmission Date: 20050211
  Serious: Yes (Death, Hospitalization, Other)
  Sender: FDA-Public Use
  Company Number: PHHO2004CA08891

PATIENT
  Age: 61 Year
  Sex: Female

DRUGS (15)
  1. CLOZARIL [Suspect]
     Indication: SCHIZOPHRENIA
     Dosage: 12.5 MG, AT BEDTIME
     Route: 048
     Dates: start: 20040401, end: 20040405
  2. CLOZARIL [Suspect]
     Dosage: 25 MG, AT BEDTIME
     Route: 048
     Dates: start: 20040406, end: 20040412
  3. CLOZARIL [Suspect]
     Dosage: 12.5 MG AM + 25 MG AT BEDTIME
     Dates: start: 20040413, end: 20040419
  4. CLOZARIL [Suspect]
     Dosage: 25 MG AM + 37.5 MG AT BEDTIME
     Route: 048
     Dates: start: 20040427, end: 20040503
  5. CLOZARIL [Suspect]
     Dosage: 25 MG AM + 25 MG AT BEDTIME
     Route: 048
     Dates: start: 20040420, end: 20040426
  6. CLOZARIL [Suspect]
     Dosage: 25 MG AM + 50 MG AT BEDTIME
     Route: 048
     Dates: start: 20040504, end: 20040510
  7. CLOZARIL [Suspect]
     Dosage: 25 MG AM + 25 MG AT BEDTIME
     Route: 048
     Dates: start: 20040511, end: 20040517
  8. CLOZARIL [Suspect]
     Dosage: 25 MG AT BEDTIME
     Route: 048
     Dates: start: 20040518, end: 20040520
  9. CLOZARIL [Suspect]
     Dosage: 12.5 MG AT BEDTIME
     Route: 048
     Dates: start: 20040521, end: 20040601
  10. ZYPREXA [Concomitant]
     Dosage: 20 MG, AT BEDTIME
     Dates: end: 20040412
  11. ZYPREXA [Concomitant]
     Dosage: 15 MG, AT BEDTIME
     Dates: start: 20040413
  12. VALPROIC ACID [Concomitant]
     Dosage: 250 MG BID + 500 MG HS
  13. VALPROIC ACID [Concomitant]
     Dosage: 500 MG, UNK
     Route: 010
  14. RIVOTRIL [Concomitant]
     Dosage: 2 MG, PRN
  15. ATIVAN [Concomitant]
     Dosage: 2 MG, BID

REACTIONS (21)
  - ABDOMINAL PAIN [None]
  - AGITATION [None]
  - ANOREXIA [None]
  - ASTHENIA [None]
  - COLD SWEAT [None]
  - CONSTIPATION [None]
  - DEATH [None]
  - DYSPNOEA [None]
  - FAECAL INCONTINENCE [None]
  - FEELING ABNORMAL [None]
  - FEELING COLD [None]
  - FLATULENCE [None]
  - ILEUS PARALYTIC [None]
  - LOOSE STOOLS [None]
  - PALLOR [None]
  - SALIVARY HYPERSECRETION [None]
  - SOMNOLENCE [None]
  - SPEECH DISORDER [None]
  - THROMBOCYTHAEMIA [None]
  - URINARY INCONTINENCE [None]
  - VOMITING [None]
